FAERS Safety Report 4375195-9 (Version None)
Quarter: 2004Q2

REPORT INFORMATION
  Report Type: 
  Country: None (occurrence: None)
  Receive Date: 20040607
  Receipt Date: 20030724
  Transmission Date: 20050107
  Serious: Yes (Other)
  Sender: FDA-Public Use
  Company Number: 343344

PATIENT
  Age: 16 Year
  Sex: Female
  Weight: 50.8 kg

DRUGS (2)
  1. ACCUTANE [Suspect]
     Indication: ACNE
     Dosage: 40 MG 2 PER DAY ORAL
     Route: 048
     Dates: start: 20030315, end: 20030723
  2. ORAL CONTRACEPTIVES CONTINUING (ORAL CONTRACEPTIVES NOS) [Concomitant]

REACTIONS (5)
  - ADVERSE EVENT [None]
  - BLOOD TRIGLYCERIDES INCREASED [None]
  - DRY SKIN [None]
  - EPISTAXIS [None]
  - LIP DRY [None]
